FAERS Safety Report 5380992-7 (Version None)
Quarter: 2007Q3

REPORT INFORMATION
  Report Type: 
  Country: None (occurrence: None)
  Receive Date: 20070702
  Receipt Date: 20070119
  Transmission Date: 20080115
  Serious: Yes (Other)
  Sender: FDA-Public Use
  Company Number: SPV1-2007-00409

PATIENT
  Age: 32 Year
  Sex: Female

DRUGS (3)
  1. PENTASA [Suspect]
     Indication: COLITIS ULCERATIVE
     Dosage: 2 G DAILY, ORAL; 4 G DAILY; 3 G DAILY
     Route: 048
     Dates: start: 20010101, end: 20060901
  2. PENTASA [Suspect]
     Indication: COLITIS ULCERATIVE
     Dosage: 2 G DAILY, ORAL; 4 G DAILY; 3 G DAILY
     Route: 048
     Dates: start: 20061001, end: 20061130
  3. PENTASA [Suspect]
     Indication: COLITIS ULCERATIVE
     Dosage: 2 G DAILY, ORAL; 4 G DAILY; 3 G DAILY
     Route: 048
     Dates: start: 20061201, end: 20061228

REACTIONS (1)
  - PANCREATITIS ACUTE [None]
